FAERS Safety Report 22664514 (Version 1)
Quarter: 2023Q2

REPORT INFORMATION
  Report Type: Spontaneous
  Country: US (occurrence: None)
  Receive Date: 20230630
  Receipt Date: 20230630
  Transmission Date: 20230721
  Serious: Yes (unspecified)
  Sender: FDA-Public Use
  Company Number: None

PATIENT
  Sex: 0

DRUGS (1)
  1. BUPROPION [Suspect]
     Active Substance: BUPROPION

REACTIONS (5)
  - Product appearance confusion [None]
  - Circumstance or information capable of leading to medication error [None]
  - Product label confusion [None]
  - Product container issue [None]
  - Product closure issue [None]
